FAERS Safety Report 11722742 (Version 1)
Quarter: 2015Q4

REPORT INFORMATION
  Report Type: Spontaneous
  Country: US (occurrence: None)
  Receive Date: 20151110
  Receipt Date: 20151110
  Transmission Date: 20160304
  Serious: Yes (Death)
  Sender: FDA-Public Use
  Company Number: None

PATIENT
  Age: 55 Year
  Sex: Male
  Weight: 117.94 kg

DRUGS (11)
  1. AMLODIPINE BESYLATE. [Concomitant]
     Active Substance: AMLODIPINE BESYLATE
  2. KRILL OIL [Concomitant]
     Active Substance: DIETARY SUPPLEMENT
  3. IBUPROFEN. [Concomitant]
     Active Substance: IBUPROFEN
  4. LEVOFLOXACIN. [Suspect]
     Active Substance: LEVOFLOXACIN
     Indication: URINARY TRACT INFECTION
     Dosage: 1 PILL ONCE DAILY BY MOUTH
     Route: 048
     Dates: start: 20150823, end: 20150825
  5. ALEVE [Concomitant]
     Active Substance: NAPROXEN SODIUM
  6. MILK THISTLE [Concomitant]
     Active Substance: MILK THISTLE
  7. PHENAZOPRIDINE [Concomitant]
  8. ASPIRIN. [Concomitant]
     Active Substance: ASPIRIN
  9. SIMVASTATIN. [Concomitant]
     Active Substance: SIMVASTATIN
  10. HYDROCHLOROTHIAZIDE. [Concomitant]
     Active Substance: HYDROCHLOROTHIAZIDE
  11. CENTRUM SILVER MEN VITAMIN [Suspect]
     Active Substance: MINERALS\VITAMINS

REACTIONS (3)
  - Seizure [None]
  - Fall [None]
  - Respiratory arrest [None]

NARRATIVE: CASE EVENT DATE: 20150825
